FAERS Safety Report 9785166 (Version 1)
Quarter: 2013Q4

REPORT INFORMATION
  Report Type: Spontaneous
  Country: KR (occurrence: KR)
  Receive Date: 20131227
  Receipt Date: 20131227
  Transmission Date: 20140711
  Serious: Yes (Other)
  Sender: FDA-Public Use
  Company Number: KR-BAYER-2013-155290

PATIENT
  Age: 53 Year
  Sex: Male

DRUGS (1)
  1. NEXAVAR [Suspect]
     Indication: HEPATIC CANCER
     Dosage: DAILY DOSE 800 MG
     Route: 048
     Dates: start: 201012

REACTIONS (4)
  - Haemorrhagic tumour necrosis [None]
  - Hepatic cirrhosis [None]
  - Bile duct stenosis [None]
  - Portal vein occlusion [None]
